FAERS Safety Report 8787741 (Version 2)
Quarter: 2012Q4

REPORT INFORMATION
  Report Type: 
  Country: JP (occurrence: JP)
  Receive Date: 20120914
  Receipt Date: 20120925
  Transmission Date: 20130627
  Serious: Yes (Hospitalization, Other)
  Sender: FDA-Public Use
  Company Number: JP-BAXTER-2012BAX016540

PATIENT
  Age: 8 Month
  Sex: Male
  Weight: 10 kg

DRUGS (1)
  1. ADVATE [Suspect]
     Indication: HAEMOPHILIA A
     Route: 042
     Dates: start: 20120907, end: 20120907

REACTIONS (2)
  - Overdose [Recovered/Resolved]
  - No adverse event [Recovered/Resolved]
